FAERS Safety Report 4513694-7 (Version None)
Quarter: 2004Q4

REPORT INFORMATION
  Report Type: 
  Country: None (occurrence: None)
  Receive Date: 20041130
  Receipt Date: 20040830
  Transmission Date: 20050328
  Serious: No
  Sender: FDA-Public Use
  Company Number: US-GLAXOSMITHKLINE-A0523779A

PATIENT
  Age: 26 Year
  Sex: Female

DRUGS (3)
  1. WELLBUTRIN XL [Suspect]
     Indication: DEPRESSION
     Dosage: 450MG PER DAY
     Route: 048
     Dates: start: 20040101
  2. PROVIGIL [Concomitant]
  3. XANAX [Concomitant]

REACTIONS (1)
  - STOOL ANALYSIS ABNORMAL [None]
